FAERS Safety Report 6652425-1 (Version None)
Quarter: 2010Q1

REPORT INFORMATION
  Report Type: 
  Country: None (occurrence: None)
  Receive Date: 20100323
  Receipt Date: 20100311
  Transmission Date: 20100710
  Serious: Yes (Hospitalization)
  Sender: FDA-Public Use
  Company Number: 232506J10USA

PATIENT
  Age: 48 Year
  Sex: Female
  Weight: 61 kg

DRUGS (8)
  1. REBIF [Suspect]
     Indication: MULTIPLE SCLEROSIS
     Dosage: 44 MCG, 3 IN 1 WEEKS, SUBCUTANEOUS
     Route: 058
     Dates: start: 20040101, end: 20080101
  2. REBIF [Suspect]
     Indication: MULTIPLE SCLEROSIS
     Dosage: 44 MCG, 3 IN 1 WEEKS, SUBCUTANEOUS
     Route: 058
     Dates: start: 20091014
  3. SOLU-MEDROL [Concomitant]
  4. CYMBALTA [Concomitant]
  5. PROVIGIL [Concomitant]
  6. BACLOFEN [Concomitant]
  7. SIMVASTATIN [Concomitant]
  8. CARBAMAZEPINE [Concomitant]

REACTIONS (4)
  - ANAEMIA [None]
  - MENORRHAGIA [None]
  - THROMBOSIS [None]
  - UTERINE LEIOMYOMA [None]
